FAERS Safety Report 8229367-3 (Version None)
Quarter: 2012Q1

REPORT INFORMATION
  Report Type: 
  Country: None (occurrence: None)
  Receive Date: 20120322
  Receipt Date: 20120321
  Transmission Date: 20120608
  Serious: Yes (Other)
  Sender: FDA-Public Use
  Company Number: US-AMGEN-USASP2012018202

PATIENT
  Weight: 100 kg

DRUGS (1)
  1. NPLATE [Suspect]
     Indication: IDIOPATHIC THROMBOCYTOPENIC PURPURA

REACTIONS (3)
  - CEREBROVASCULAR ACCIDENT [None]
  - PLATELET COUNT DECREASED [None]
  - PLATELET COUNT ABNORMAL [None]
